FAERS Safety Report 7283854-3 (Version None)
Quarter: 2011Q1

REPORT INFORMATION
  Report Type: 
  Country: None (occurrence: None)
  Receive Date: 20110209
  Receipt Date: 20110127
  Transmission Date: 20110831
  Serious: Yes (Hospitalization)
  Sender: FDA-Public Use
  Company Number: NL-WATSON-2011-01457

PATIENT
  Age: 61 Year
  Sex: Male

DRUGS (2)
  1. FUROSEMIDE (WATSON LABORATORIES) [Suspect]
     Indication: PRODUCT USED FOR UNKNOWN INDICATION
     Dosage: 80 MG, BID
  2. ENALAPRIL (WATSON LABORATORIES) [Suspect]
     Indication: HYPERTENSION
     Dosage: 20 MG, BID

REACTIONS (2)
  - HYPERKALAEMIA [None]
  - RENAL FAILURE [None]
